FAERS Safety Report 5406117-7 (Version None)
Quarter: 2007Q3

REPORT INFORMATION
  Report Type: 
  Country: None (occurrence: None)
  Receive Date: 20070802
  Receipt Date: 20070724
  Transmission Date: 20080115
  Serious: Yes (Hospitalization)
  Sender: FDA-Public Use
  Company Number: 2007AL003007

PATIENT
  Age: 21 Year
  Sex: Female

DRUGS (2)
  1. GABAPENTIN [Suspect]
     Indication: PAIN
     Dosage: 2400 MG; QD; PO
     Route: 048
     Dates: start: 20040701
  2. MEFENAMIC ACID [Concomitant]

REACTIONS (6)
  - CATATONIA [None]
  - DELUSION [None]
  - HALLUCINATION, AUDITORY [None]
  - IDEAS OF REFERENCE [None]
  - STEREOTYPY [None]
  - STUPOR [None]
